FAERS Safety Report 9693439 (Version 1)
Quarter: 2013Q4

REPORT INFORMATION
  Report Type: Report from Study
  Country: JP (occurrence: JP)
  Receive Date: 20131118
  Receipt Date: 20131118
  Transmission Date: 20140711
  Serious: Yes (Life-Threatening, Hospitalization, Other)
  Sender: FDA-Public Use
  Company Number: JP-TAKEDA-2013TJP002829

PATIENT
  Age: 73 Year
  Sex: Male
  Weight: 63 kg

DRUGS (9)
  1. LANSOPRAZOLE [Suspect]
     Indication: PROPHYLAXIS AGAINST GASTROINTESTINAL ULCER
     Dosage: 15 MG, QD
     Route: 048
     Dates: start: 20120611, end: 20130730
  2. BAYASPIRIN [Concomitant]
     Indication: THROMBOSIS PROPHYLAXIS
     Dosage: 100 MG, 1 DAYS
     Route: 048
  3. PREMINENT [Concomitant]
     Dosage: 1 DF,1 DAYS
     Route: 048
  4. AMLODIN [Concomitant]
     Dosage: 10 MG, 1 DAYS
     Route: 048
  5. TENORMIN [Concomitant]
     Dosage: 25 MG, 1 DAYS
     Route: 048
  6. CRESTOR [Concomitant]
     Dosage: 5 MG, 1 DAYS
     Route: 048
  7. ITOROL [Concomitant]
     Indication: MYOCARDIAL INFARCTION
     Dosage: 40 MG, 1 DAYS
     Route: 048
  8. CABASER [Concomitant]
     Dosage: 0.5 MG, 1 DAYS
     Route: 048
  9. MYSLEE [Concomitant]
     Indication: INSOMNIA
     Dosage: 10 MG, 1 DAYS
     Route: 048

REACTIONS (1)
  - Breast cancer [Recovered/Resolved]
